FAERS Safety Report 15351940 (Version 3)
Quarter: 2021Q3

REPORT INFORMATION
  Report Type: Other
  Country: US (occurrence: US)
  Receive Date: 20180905
  Receipt Date: 20210909
  Transmission Date: 20211014
  Serious: Yes (Disabling, Other)
  Sender: FDA-Public Use
  Company Number: US-APOTEX-2018AP020128

PATIENT
  Sex: Male

DRUGS (2)
  1. FLUTICASONE PROPIONATE NASAL SPRAY [Suspect]
     Active Substance: FLUTICASONE PROPIONATE
     Indication: PRODUCT USED FOR UNKNOWN INDICATION
     Dosage: UNK
     Route: 065
     Dates: start: 201803, end: 201806
  2. FLUTICASONE PROPIONATE NASAL SPRAY [Suspect]
     Active Substance: FLUTICASONE PROPIONATE
     Dosage: UNK
     Route: 065
     Dates: start: 20180710

REACTIONS (10)
  - Recalled product administered [Unknown]
  - Epistaxis [Recovered/Resolved]
  - Injury [Unknown]
  - Product contamination physical [Unknown]
  - Emotional distress [Unknown]
  - Economic problem [Unknown]
  - Disability [Unknown]
  - Impaired quality of life [Unknown]
  - Pain [Unknown]
  - Product quality issue [Unknown]

NARRATIVE: CASE EVENT DATE: 2018
